FAERS Safety Report 9769737 (Version 1)
Quarter: 2013Q4

REPORT INFORMATION
  Report Type: Spontaneous
  Country: US (occurrence: US)
  Receive Date: 20131218
  Receipt Date: 20131218
  Transmission Date: 20140711
  Serious: No
  Sender: FDA-Public Use
  Company Number: US-VERTEX PHARMACEUTICALS INC-AE-2011-000554

PATIENT
  Age: 64 Year
  Sex: Female
  Weight: 84.55 kg

DRUGS (6)
  1. INCIVEK [Suspect]
     Indication: HEPATITIS C
     Dates: start: 20110719
  2. RIBAVIRIN [Concomitant]
     Indication: HEPATITIS C
     Dates: start: 20110719
  3. INTERFERON [Concomitant]
     Indication: HEPATITIS C
     Dates: start: 20110719
  4. METFORMIN [Concomitant]
     Route: 048
     Dates: start: 201011
  5. HYDROCHLOROTHIAZIDE [Concomitant]
     Route: 048
     Dates: start: 2008
  6. PREVACID [Concomitant]
     Route: 048
     Dates: start: 2009

REACTIONS (1)
  - Rash pustular [Unknown]
